FAERS Safety Report 16481720 (Version 1)
Quarter: 2019Q2

REPORT INFORMATION
  Report Type: Spontaneous
  Country: US (occurrence: US)
  Receive Date: 20190627
  Receipt Date: 20190627
  Transmission Date: 20190711
  Serious: Yes (Hospitalization)
  Sender: FDA-Public Use
  Company Number: US-SUN PHARMACEUTICAL INDUSTRIES LTD-2019R1-211393

PATIENT
  Age: 7 Day

DRUGS (1)
  1. ACETAMINOPHEN/BUTALBITAL/CAFFEINE [Suspect]
     Active Substance: ACETAMINOPHEN\BUTALBITAL\CAFFEINE
     Indication: HEADACHE
     Dosage: QID
     Route: 063

REACTIONS (5)
  - Vomiting [Recovering/Resolving]
  - Somnolence [Recovering/Resolving]
  - Poor feeding infant [Recovering/Resolving]
  - Maternal exposure during breast feeding [Unknown]
  - Depressed level of consciousness [Recovering/Resolving]
